FAERS Safety Report 10279508 (Version 2)
Quarter: 2014Q3

REPORT INFORMATION
  Report Type: Report from Study
  Country: None (occurrence: IT)
  Receive Date: 20140707
  Receipt Date: 20140710
  Transmission Date: 20150326
  Serious: Yes (Hospitalization)
  Sender: FDA-Public Use
  Company Number: IT-ASPEN PHARMA TRADING LIMITED US-AG-2014-003862

PATIENT
  Age: 72 Year
  Sex: Male

DRUGS (27)
  1. OBINUTUZUMAB (LIQUID) [Interacting]
     Active Substance: OBINUTUZUMAB
     Dosage: (C1D15) AT 1000 MG WITH INFUSION RATE OF 400 FROM 11:30 HR TO 15:30 HR
     Route: 042
     Dates: start: 20140415, end: 20140415
  2. ISONIAZID. [Concomitant]
     Active Substance: ISONIAZID
     Indication: PRODUCT USED FOR UNKNOWN INDICATION
     Route: 048
     Dates: start: 20140328
  3. FLUCONAZOLE. [Concomitant]
     Active Substance: FLUCONAZOLE
     Route: 042
     Dates: start: 20140616, end: 20140625
  4. OBINUTUZUMAB (LIQUID) [Interacting]
     Active Substance: OBINUTUZUMAB
     Dosage: (C1D8) AT 1000 MG WITH INFUSION RATE OF 400 FROM 12:00 HR TO 16:00 HR.
     Route: 042
     Dates: start: 20140408, end: 20140408
  5. ALLOPURINOL. [Concomitant]
     Active Substance: ALLOPURINOL
     Indication: PRODUCT USED FOR UNKNOWN INDICATION
     Route: 048
     Dates: start: 20140331
  6. MAGALDRATE [Concomitant]
     Active Substance: MAGALDRATE
     Indication: PRODUCT USED FOR UNKNOWN INDICATION
     Route: 048
     Dates: start: 20140402, end: 20140603
  7. PYRIDOXINE [Concomitant]
     Active Substance: PYRIDOXINE
     Indication: PRODUCT USED FOR UNKNOWN INDICATION
     Route: 065
     Dates: start: 20140325, end: 20140603
  8. LANSOPRAZOLE. [Concomitant]
     Active Substance: LANSOPRAZOLE
     Indication: PRODUCT USED FOR UNKNOWN INDICATION
     Route: 048
     Dates: start: 20140328
  9. MEROPENEM. [Concomitant]
     Active Substance: MEROPENEM
     Indication: PRODUCT USED FOR UNKNOWN INDICATION
     Route: 042
     Dates: start: 20140616, end: 20140625
  10. OBINUTUZUMAB (LIQUID) [Interacting]
     Active Substance: OBINUTUZUMAB
     Indication: CHRONIC LYMPHOCYTIC LEUKAEMIA
     Dosage: CYCLE 1 DAY 1 (C1D1) AT 25 MG WITH INFUSION RATE OF 12.5 FROM 11:00 HR TO 15:00 HR.
     Route: 042
     Dates: start: 20140401, end: 20140401
  11. OBINUTUZUMAB (LIQUID) [Interacting]
     Active Substance: OBINUTUZUMAB
     Route: 042
     Dates: start: 20140429
  12. TRIATEC [Concomitant]
     Active Substance: RAMIPRIL
     Indication: PRODUCT USED FOR UNKNOWN INDICATION
     Dosage: 2.5 + 15 MG (1 IN 1 DAY)
     Route: 048
     Dates: start: 20140328
  13. ACETYLSALICYLIC ACID [Concomitant]
     Active Substance: ASPIRIN
     Indication: PRODUCT USED FOR UNKNOWN INDICATION
     Route: 048
     Dates: start: 20140328
  14. AZITHROMYCIN [Concomitant]
     Active Substance: AZITHROMYCIN ANHYDROUS
     Indication: PRODUCT USED FOR UNKNOWN INDICATION
     Route: 048
     Dates: start: 20140604, end: 20140613
  15. AZITHROMYCIN [Concomitant]
     Active Substance: AZITHROMYCIN ANHYDROUS
     Route: 048
     Dates: start: 20140616, end: 20140625
  16. CEFTRIAXONE. [Concomitant]
     Active Substance: CEFTRIAXONE
     Indication: PRODUCT USED FOR UNKNOWN INDICATION
     Route: 042
     Dates: start: 20140604, end: 20140613
  17. CEFTAZIDIME. [Concomitant]
     Active Substance: CEFTAZIDIME
     Indication: PRODUCT USED FOR UNKNOWN INDICATION
     Route: 042
     Dates: start: 20140625
  18. CHLORAMBUCIL TABLET [Suspect]
     Active Substance: CHLORAMBUCIL
     Indication: CHRONIC LYMPHOCYTIC LEUKAEMIA
     Dosage: C1D1
     Route: 048
     Dates: start: 20140401, end: 20140401
  19. FLUCONAZOLE. [Concomitant]
     Active Substance: FLUCONAZOLE
     Indication: PRODUCT USED FOR UNKNOWN INDICATION
     Route: 042
     Dates: start: 20140604, end: 20140614
  20. DELORAZEPAM [Concomitant]
     Active Substance: DELORAZEPAM
     Route: 065
     Dates: start: 20140423
  21. CHLORAMBUCIL TABLET [Interacting]
     Active Substance: CHLORAMBUCIL
     Dosage: C1D15
     Route: 048
     Dates: start: 20140415, end: 20140415
  22. OBINUTUZUMAB (LIQUID) [Interacting]
     Active Substance: OBINUTUZUMAB
     Dosage: C1D2 INFUSION RATE: 40 FROM 11:30 HR TO 15:00 HR.
     Route: 042
     Dates: start: 20140402, end: 20140402
  23. CHLORAMBUCIL TABLET [Interacting]
     Active Substance: CHLORAMBUCIL
     Route: 048
     Dates: start: 20140604, end: 20140604
  24. LEVOFLOXACIN [Concomitant]
     Active Substance: LEVOFLOXACIN
     Indication: PRODUCT USED FOR UNKNOWN INDICATION
     Route: 048
     Dates: start: 20140627
  25. ITRACONAZOLE. [Concomitant]
     Active Substance: ITRACONAZOLE
     Indication: PRODUCT USED FOR UNKNOWN INDICATION
     Route: 042
     Dates: start: 20140625, end: 20140626
  26. ITRACONAZOLE. [Concomitant]
     Active Substance: ITRACONAZOLE
     Route: 042
     Dates: start: 20140627
  27. DELORAZEPAM [Concomitant]
     Active Substance: DELORAZEPAM
     Indication: PRODUCT USED FOR UNKNOWN INDICATION
     Dosage: 10 DROPS
     Route: 065
     Dates: start: 20140323

REACTIONS (1)
  - Cardiac failure acute [Recovered/Resolved with Sequelae]

NARRATIVE: CASE EVENT DATE: 20140513
